FAERS Safety Report 24592244 (Version 1)
Quarter: 2024Q4

REPORT INFORMATION
  Report Type: Spontaneous
  Country: US (occurrence: US)
  Receive Date: 20241108
  Receipt Date: 20241108
  Transmission Date: 20250115
  Serious: No
  Sender: TEVA
  Company Number: US-TEVA-VS-3256801

PATIENT
  Age: 67 Year
  Sex: Female
  Weight: 74.3 kg

DRUGS (1)
  1. AJOVY [Suspect]
     Active Substance: FREMANEZUMAB-VFRM
     Indication: Product used for unknown indication
     Dosage: OVER A YEAR AGO (EXACT START DATE UNKNOWN), (UNDER THE SKIN)
     Route: 058

REACTIONS (3)
  - Injection site urticaria [Unknown]
  - Injection site pruritus [Unknown]
  - Injection site swelling [Unknown]
